FAERS Safety Report 7022928-9 (Version None)
Quarter: 2010Q3

REPORT INFORMATION
  Report Type: 
  Country: None (occurrence: None)
  Receive Date: 20100930
  Receipt Date: 20100922
  Transmission Date: 20110219
  Serious: Yes (Other)
  Sender: FDA-Public Use
  Company Number: US-PFIZER INC-2010122504

PATIENT
  Sex: Female
  Weight: 80 kg

DRUGS (3)
  1. CLINDAMYCIN PHOSPHATE [Suspect]
  2. CEFTRIAXONE [Suspect]
  3. HYDROCORTISONE [Suspect]

REACTIONS (1)
  - HYPERSENSITIVITY [None]
